FAERS Safety Report 4348339-2 (Version None)
Quarter: 2004Q2

REPORT INFORMATION
  Report Type: 
  Country: None (occurrence: None)
  Receive Date: 20040427
  Receipt Date: 20040402
  Transmission Date: 20050107
  Serious: Yes (Hospitalization)
  Sender: FDA-Public Use
  Company Number: FR-GLAXOSMITHKLINE-B0328843A

PATIENT
  Age: 81 Year
  Sex: Female
  Weight: 51 kg

DRUGS (7)
  1. ZOVIRAX [Suspect]
     Indication: HERPES SIMPLEX OPHTHALMIC
     Dosage: 10MGK THREE TIMES PER DAY
     Route: 042
     Dates: start: 20040329, end: 20040402
  2. LOXEN [Concomitant]
     Indication: HYPERTENSION
     Dosage: 50MG TWICE PER DAY
     Route: 048
     Dates: end: 20040401
  3. RENITEC [Concomitant]
     Indication: HYPERTENSION
     Dosage: 20MG PER DAY
     Route: 048
     Dates: end: 20040402
  4. ATARAX [Concomitant]
     Indication: PRURITUS
     Dosage: 25MG PER DAY
     Route: 048
     Dates: start: 20040329, end: 20040404
  5. LOVENOX [Concomitant]
     Indication: PHLEBITIS
     Dosage: 20000UNIT PER DAY
     Route: 058
     Dates: start: 20040329, end: 20040404
  6. PRIMPERAN INJ [Concomitant]
     Indication: NAUSEA
     Route: 058
     Dates: start: 20040330, end: 20040330
  7. PLASMA-LYTE 56 AND DEXTROSE 5% IN PLASTIC CONTAINER [Concomitant]
     Route: 042
     Dates: start: 20040330, end: 20040401

REACTIONS (2)
  - RENAL FAILURE ACUTE [None]
  - RENAL TUBULAR NECROSIS [None]
